FAERS Safety Report 5271296-1 (Version None)
Quarter: 2007Q1

REPORT INFORMATION
  Report Type: 
  Country: None (occurrence: None)
  Receive Date: 20070308
  Receipt Date: 20070227
  Transmission Date: 20070707
  Serious: Yes (Hospitalization)
  Sender: FDA-Public Use
  Company Number: 200710163BYL

PATIENT
  Age: 48 Year
  Sex: Male
  Weight: 70 kg

DRUGS (17)
  1. KOGENATE FS [Suspect]
     Indication: ABDOMINAL HAEMATOMA
     Dosage: SEE IMAGE
     Dates: start: 20070201, end: 20070202
  2. KOGENATE FS [Suspect]
     Indication: CHOLECYSTECTOMY
     Dosage: SEE IMAGE
     Dates: start: 20070201, end: 20070202
  3. KOGENATE FS [Suspect]
     Indication: FACTOR VIII DEFICIENCY
     Dosage: SEE IMAGE
     Dates: start: 20070201, end: 20070202
  4. KOGENATE FS [Suspect]
     Indication: ABDOMINAL HAEMATOMA
     Dosage: SEE IMAGE
     Dates: start: 20070203, end: 20070214
  5. KOGENATE FS [Suspect]
     Indication: CHOLECYSTECTOMY
     Dosage: SEE IMAGE
     Dates: start: 20070203, end: 20070214
  6. KOGENATE FS [Suspect]
     Indication: FACTOR VIII DEFICIENCY
     Dosage: SEE IMAGE
     Dates: start: 20070203, end: 20070214
  7. KOGENATE FS [Suspect]
     Indication: ABDOMINAL HAEMATOMA
     Dosage: SEE IMAGE
     Dates: start: 20070131
  8. KOGENATE FS [Suspect]
     Indication: CHOLECYSTECTOMY
     Dosage: SEE IMAGE
     Dates: start: 20070131
  9. KOGENATE FS [Suspect]
     Indication: FACTOR VIII DEFICIENCY
     Dosage: SEE IMAGE
     Dates: start: 20070131
  10. KOGENATE FS [Suspect]
     Indication: ABDOMINAL HAEMATOMA
     Dosage: SEE IMAGE
     Dates: start: 20070201
  11. KOGENATE FS [Suspect]
     Indication: CHOLECYSTECTOMY
     Dosage: SEE IMAGE
     Dates: start: 20070201
  12. KOGENATE FS [Suspect]
     Indication: FACTOR VIII DEFICIENCY
     Dosage: SEE IMAGE
     Dates: start: 20070201
  13. KOGENATE FS [Suspect]
     Indication: ABDOMINAL HAEMATOMA
     Dosage: SEE IMAGE
     Dates: start: 20070216
  14. KOGENATE FS [Suspect]
     Indication: CHOLECYSTECTOMY
     Dosage: SEE IMAGE
     Dates: start: 20070216
  15. KOGENATE FS [Suspect]
     Indication: FACTOR VIII DEFICIENCY
     Dosage: SEE IMAGE
     Dates: start: 20070216
  16. KOGENATE FS [Suspect]
  17. AMICALIQ [Concomitant]

REACTIONS (3)
  - C-REACTIVE PROTEIN INCREASED [None]
  - POSTOPERATIVE FEVER [None]
  - WHITE BLOOD CELL COUNT INCREASED [None]
